FAERS Safety Report 7790888-9 (Version None)
Quarter: 2011Q3

REPORT INFORMATION
  Report Type: 
  Country: None (occurrence: None)
  Receive Date: 20110930
  Receipt Date: 20110926
  Transmission Date: 20111222
  Serious: Yes (Hospitalization)
  Sender: FDA-Public Use
  Company Number: GB-AMGEN-GBRCT2011049775

PATIENT
  Age: 71 Year
  Sex: Male

DRUGS (4)
  1. EPIRUBICIN [Concomitant]
  2. OXALIPLATIN [Concomitant]
  3. CAPECITABINE [Concomitant]
  4. PANITUMUMAB [Suspect]
     Indication: GASTROOESOPHAGEAL CANCER

REACTIONS (1)
  - PERIPHERAL MOTOR NEUROPATHY [None]
